FAERS Safety Report 14731495 (Version 1)
Quarter: 2018Q2

REPORT INFORMATION
  Report Type: Spontaneous
  Country: US (occurrence: US)
  Receive Date: 20180407
  Receipt Date: 20180407
  Transmission Date: 20180711
  Serious: No
  Sender: FDA-Public Use
  Company Number: US-TEVA-2018-US-878009

PATIENT
  Sex: Male

DRUGS (1)
  1. CHLORDIAZEPOXIDE. [Suspect]
     Active Substance: CHLORDIAZEPOXIDE
     Indication: ANXIETY
     Route: 065
     Dates: start: 20180328

REACTIONS (5)
  - Headache [Unknown]
  - Muscle contractions involuntary [Unknown]
  - Dizziness [Unknown]
  - Feeling abnormal [Unknown]
  - Arthralgia [Unknown]

NARRATIVE: CASE EVENT DATE: 20180328
